FAERS Safety Report 4450749-X (Version None)
Quarter: 2004Q3

REPORT INFORMATION
  Report Type: 
  Country: None (occurrence: None)
  Receive Date: 20040916
  Receipt Date: 20040903
  Transmission Date: 20050211
  Serious: Yes (Other)
  Sender: FDA-Public Use
  Company Number: 200418898GDDC

PATIENT
  Age: 47 Year
  Sex: Female

DRUGS (25)
  1. TAXOTERE [Suspect]
     Indication: BREAST CANCER
     Route: 042
     Dates: start: 20040703, end: 20040831
  2. GEMZAR [Concomitant]
     Indication: CARCINOMA
     Route: 042
     Dates: start: 20040703, end: 20040831
  3. ACETAMINOPHEN [Concomitant]
     Indication: PAIN
     Route: 048
  4. LIDOCAINE [Concomitant]
     Dosage: DOSE: UNK
     Route: 061
  5. LORAZEPAM [Concomitant]
     Route: 048
  6. ANUSOL HC [Concomitant]
     Route: 054
  7. DULCOLAX [Concomitant]
     Route: 054
  8. CALCIUM [Concomitant]
     Route: 048
  9. COLACE [Concomitant]
     Route: 048
  10. FENTANYL [Concomitant]
     Route: 062
  11. FOLIC ACID [Concomitant]
     Route: 048
  12. HEPARIN [Concomitant]
     Dosage: DOSE UNIT: UNITS
     Route: 058
  13. HYDROMORPHONE HCL [Concomitant]
     Route: 042
  14. MULTI-VITAMINS [Concomitant]
  15. LOSEC [Concomitant]
     Route: 048
  16. PHENYTOIN [Concomitant]
     Route: 048
  17. VITAMIN K TAB [Concomitant]
     Dosage: DOSE UNIT: MILLIGRAM PER MILLILITRE
     Route: 042
  18. PYRIDOXINE [Concomitant]
  19. SENOKOT [Concomitant]
     Route: 048
  20. LACTULOSE [Concomitant]
     Route: 048
  21. ATIVAN [Concomitant]
     Route: 060
  22. MAGNESIUM OXIDE [Concomitant]
     Route: 048
  23. MAGNESIUM SULFATE [Concomitant]
     Route: 042
  24. MEGESTROL [Concomitant]
     Route: 048
  25. MINERAL OIL [Concomitant]

REACTIONS (4)
  - INTESTINAL OBSTRUCTION [None]
  - MALIGNANT NEOPLASM PROGRESSION [None]
  - PORPHYRIA [None]
  - URINARY RETENTION [None]
